FAERS Safety Report 18374980 (Version 3)
Quarter: 2021Q1

REPORT INFORMATION
  Report Type: Spontaneous
  Country: JP (occurrence: JP)
  Receive Date: 20201012
  Receipt Date: 20210113
  Transmission Date: 20210419
  Serious: Yes (Hospitalization)
  Sender: FDA-Public Use
  Company Number: JP-ALLERGAN-2038327US

PATIENT
  Sex: Female
  Weight: 41 kg

DRUGS (9)
  1. MEMANTINE HCL ? BP [Suspect]
     Active Substance: MEMANTINE
     Indication: DEMENTIA ALZHEIMER^S TYPE
     Dosage: 20 MG, QD
     Dates: end: 20201001
  2. MAGMITT [Concomitant]
     Active Substance: MAGNESIUM OXIDE
     Dosage: UNK
  3. BENZALIN [Concomitant]
     Dosage: UNK
  4. ETIZOLAM [Concomitant]
     Active Substance: ETIZOLAM
     Dosage: UNK
  5. AMLODIPINE [Concomitant]
     Active Substance: AMLODIPINE BESYLATE
     Dosage: UNK
     Dates: end: 20201001
  6. DAIKENCHUTO [Concomitant]
     Active Substance: HERBALS
     Dosage: UNK
  7. GASMOTIN [Concomitant]
     Active Substance: MOSAPRIDE CITRATE
     Dosage: UNK
     Dates: end: 20201001
  8. LACTIC ACID. [Concomitant]
     Active Substance: LACTIC ACID
  9. FUROSEMIDE. [Concomitant]
     Active Substance: FUROSEMIDE
     Dosage: UNK
     Dates: end: 20201001

REACTIONS (1)
  - Atrioventricular block complete [Recovering/Resolving]
